FAERS Safety Report 4415244-2 (Version None)
Quarter: 2004Q3

REPORT INFORMATION
  Report Type: 
  Country: None (occurrence: None)
  Receive Date: 20040729
  Receipt Date: 20040721
  Transmission Date: 20050211
  Serious: No
  Sender: FDA-Public Use
  Company Number: 2004209433JP

PATIENT
  Age: 66 Year
  Sex: Male

DRUGS (5)
  1. CYCLOPHOSPHAMIDE [Suspect]
     Indication: NON-HODGKIN'S LYMPHOMA
     Dosage: TOTAL DOSE: 10,330 MG/8 CYCLES, UNK
     Route: 042
  2. DOXORUBICIN HYDROCHLORIDE [Suspect]
     Indication: NON-HODGKIN'S LYMPHOMA
     Dosage: TOTAL DOSE: 688 MG/8 CYCLES, UNK
     Route: 042
  3. VINCRISTINE [Suspect]
     Indication: NON-HODGKIN'S LYMPHOMA
     Dosage: TOTAL DOSE: 16 MG/8 CYCLES, UNK
     Route: 042
  4. DELTA-CORTEF [Suspect]
     Indication: NON-HODGKIN'S LYMPHOMA
     Dosage: UNK, 8 CYCLES, UNK
  5. RADIOTHERAPY  (RADIOTHERAPY) [Suspect]
     Indication: NON-HODGKIN'S LYMPHOMA
     Dosage: 45 GY/18 FRACTIONS, UNK

REACTIONS (1)
  - NO ADVERSE DRUG EFFECT [None]
